FAERS Safety Report 5710482-0 (Version None)
Quarter: 2008Q2

REPORT INFORMATION
  Report Type: 
  Country: None (occurrence: None)
  Receive Date: 20080418
  Receipt Date: 20080407
  Transmission Date: 20081010
  Serious: Yes (Hospitalization)
  Sender: FDA-Public Use
  Company Number: ES-GENENTECH-255706

PATIENT
  Sex: Female
  Weight: 65 kg

DRUGS (4)
  1. RITUXIMAB [Suspect]
     Indication: CHRONIC LYMPHOCYTIC LEUKAEMIA
     Dosage: 844 MG, Q4W
     Route: 042
     Dates: start: 20070326
  2. FLUDARABINE PHOSPHATE [Suspect]
     Indication: CHRONIC LYMPHOCYTIC LEUKAEMIA
     Dosage: 31 MG, UNK
     Route: 042
     Dates: start: 20070327
  3. CYCLOPHOSPHAMIDE [Suspect]
     Indication: CHRONIC LYMPHOCYTIC LEUKAEMIA
     Dosage: 252 MG, UNK
     Route: 042
     Dates: start: 20070327
  4. MITOXANTRONE [Suspect]
     Indication: CHRONIC LYMPHOCYTIC LEUKAEMIA
     Dosage: 8 MG, Q4W
     Route: 042
     Dates: start: 20070327

REACTIONS (3)
  - COUGH [None]
  - FEBRILE NEUTROPENIA [None]
  - PYREXIA [None]
